FAERS Safety Report 5664071-7 (Version None)
Quarter: 2008Q1

REPORT INFORMATION
  Report Type: 
  Country: None (occurrence: None)
  Receive Date: 20080314
  Receipt Date: 20080303
  Transmission Date: 20080703
  Serious: Yes (Other)
  Sender: FDA-Public Use
  Company Number: US-ELI_LILLY_AND_COMPANY-US200802003869

PATIENT
  Sex: Female
  Weight: 72.562 kg

DRUGS (5)
  1. FORTEO [Suspect]
     Indication: OSTEOPOROSIS
     Dosage: 20 UG, DAILY (1/D)
     Dates: start: 20080212, end: 20080214
  2. LEVOTHYROXINE SODIUM [Concomitant]
     Dosage: 1000 UG, DAILY (1/D)
  3. GLUCOPHAGE [Concomitant]
  4. PRILOSEC [Concomitant]
  5. ATENOLOL [Concomitant]

REACTIONS (2)
  - ANGIOEDEMA [None]
  - CHEST PAIN [None]
